FAERS Safety Report 5957467-7 (Version None)
Quarter: 2008Q4

REPORT INFORMATION
  Report Type: 
  Country: None (occurrence: None)
  Receive Date: 20081114
  Receipt Date: 20081031
  Transmission Date: 20090506
  Serious: No
  Sender: FDA-Public Use
  Company Number: C-08-0074-W

PATIENT
  Age: 34 Year
  Sex: Male
  Weight: 67.1324 kg

DRUGS (1)
  1. CEFTRIAXONE [Suspect]
     Indication: CELLULITIS
     Dosage: 1GM, INJECTED

REACTIONS (1)
  - INJECTION SITE PAIN [None]
